FAERS Safety Report 8374795-9 (Version None)
Quarter: 2012Q2

REPORT INFORMATION
  Report Type: 
  Country: None (occurrence: None)
  Receive Date: 20120521
  Receipt Date: 20120510
  Transmission Date: 20120825
  Serious: No
  Sender: FDA-Public Use
  Company Number: US-CELGENEUS-163-21880-12030351

PATIENT
  Sex: Female
  Weight: 62.3 kg

DRUGS (12)
  1. ASPIRIN [Concomitant]
     Route: 065
  2. BENADRYL [Concomitant]
     Route: 065
  3. PROTONIX [Concomitant]
     Route: 065
  4. TUSSEND [Concomitant]
     Route: 065
  5. DAPSONE [Concomitant]
     Route: 065
  6. RITUXAN [Concomitant]
     Route: 065
  7. MINOCYCLINE HCL [Concomitant]
     Route: 065
  8. NEURONTIN [Concomitant]
     Route: 065
  9. REVLIMID [Suspect]
     Dosage: 10 MILLIGRAM
     Route: 048
     Dates: start: 20120113
  10. NEULASTA [Concomitant]
     Route: 065
  11. DILAUDID [Concomitant]
     Route: 065
  12. LEVAQUIN [Concomitant]
     Route: 065

REACTIONS (2)
  - CHRONIC LYMPHOCYTIC LEUKAEMIA [None]
  - DRUG INEFFECTIVE [None]
